FAERS Safety Report 15314933 (Version 1)
Quarter: 2018Q3

REPORT INFORMATION
  Report Type: Spontaneous
  Country: US (occurrence: US)
  Receive Date: 20180824
  Receipt Date: 20180824
  Transmission Date: 20181010
  Serious: No
  Sender: FDA-Public Use
  Company Number: US-ALKERMES INC.-ALK-2018-004405

PATIENT
  Age: 46 Year
  Sex: Male
  Weight: 83.9 kg

DRUGS (1)
  1. ARISTADA [Suspect]
     Active Substance: ARIPIPRAZOLE LAUROXIL
     Indication: SCHIZOPHRENIA
     Dosage: 882 MG, QMO
     Route: 030
     Dates: start: 201802

REACTIONS (4)
  - Death of companion [Not Recovered/Not Resolved]
  - Depression [Not Recovered/Not Resolved]
  - Insomnia [Not Recovered/Not Resolved]
  - Obsessive thoughts [Not Recovered/Not Resolved]

NARRATIVE: CASE EVENT DATE: 201808
